FAERS Safety Report 20945245 (Version 1)
Quarter: 2022Q2

REPORT INFORMATION
  Report Type: Spontaneous
  Country: US (occurrence: None)
  Receive Date: 20220609
  Receipt Date: 20220609
  Transmission Date: 20220721
  Serious: Yes (Other)
  Sender: FDA-Public Use
  Company Number: None

PATIENT
  Age: 74 Year
  Sex: Female
  Weight: 77.9 kg

DRUGS (2)
  1. PACLITAXEL [Suspect]
     Active Substance: PACLITAXEL
     Indication: Endometrial cancer
     Dosage: OTHER FREQUENCY : CHEMOTHERAPY CYCLE;?
     Route: 042
  2. CARBOPLATIN [Concomitant]
     Active Substance: CARBOPLATIN
     Dates: start: 20220427, end: 20220427

REACTIONS (3)
  - Throat tightness [None]
  - Flushing [None]
  - Infusion related reaction [None]

NARRATIVE: CASE EVENT DATE: 20220427
